FAERS Safety Report 24978207 (Version 4)
Quarter: 2025Q2

REPORT INFORMATION
  Report Type: Spontaneous
  Country: ES (occurrence: ES)
  Receive Date: 20250217
  Receipt Date: 20250422
  Transmission Date: 20250716
  Serious: No
  Sender: PFIZER
  Company Number: ES-PFIZER INC-202500027962

PATIENT
  Sex: Female

DRUGS (1)
  1. SOMATROPIN [Suspect]
     Active Substance: SOMATROPIN

REACTIONS (1)
  - Device mechanical issue [Unknown]
